FAERS Safety Report 18021004 (Version 1)
Quarter: 2020Q3

REPORT INFORMATION
  Report Type: Spontaneous
  Country: US (occurrence: US)
  Receive Date: 20200714
  Receipt Date: 20200714
  Transmission Date: 20201103
  Serious: Yes (Other)
  Sender: FDA-Public Use
  Company Number: US-HIKMA PHARMACEUTICALS USA INC.-US-H14001-20-03250

PATIENT
  Sex: Male

DRUGS (1)
  1. METHADONE [Suspect]
     Active Substance: METHADONE HYDROCHLORIDE
     Indication: DEPENDENCE
     Route: 065

REACTIONS (5)
  - Weight increased [Unknown]
  - Drug dependence [Unknown]
  - Pain [Unknown]
  - Peripheral swelling [Unknown]
  - Glucose tolerance impaired [Unknown]
